FAERS Safety Report 9907952 (Version 10)
Quarter: 2014Q3

REPORT INFORMATION
  Report Type: Report from Study
  Country: US (occurrence: US)
  Receive Date: 20140219
  Receipt Date: 20140919
  Transmission Date: 20150326
  Serious: Yes (Death, Life-Threatening, Hospitalization, Other)
  Sender: FDA-Public Use
  Company Number: US-ALEXION PHARMACEUTICALS INC.-A201400513

PATIENT

DRUGS (7)
  1. ALBUMIN [Concomitant]
     Active Substance: ALBUMIN (HUMAN)
     Indication: PRODUCT USED FOR UNKNOWN INDICATION
     Route: 065
  2. SOLIRIS [Suspect]
     Active Substance: ECULIZUMAB
     Dosage: 1200 MG, Q2W
     Route: 042
     Dates: start: 20140311
  3. FRUSEMIDE                          /00032601/ [Concomitant]
     Active Substance: FUROSEMIDE
     Indication: PRODUCT USED FOR UNKNOWN INDICATION
     Route: 065
  4. SOLIRIS [Suspect]
     Active Substance: ECULIZUMAB
     Indication: PAROXYSMAL NOCTURNAL HAEMOGLOBINURIA
     Dosage: 900 MG, Q2W
     Route: 042
     Dates: start: 20131210
  5. SOLIRIS [Suspect]
     Active Substance: ECULIZUMAB
     Dosage: 1200 MG, Q2W
     Route: 042
     Dates: start: 20140311
  6. CHLOROTHIAZIDE. [Concomitant]
     Active Substance: CHLOROTHIAZIDE
     Indication: PRODUCT USED FOR UNKNOWN INDICATION
     Route: 065
  7. TPN [Concomitant]
     Active Substance: AMINO ACIDS\DEXTROSE\ELECTROLYTES NOS\SOYBEAN OIL
     Indication: PRODUCT USED FOR UNKNOWN INDICATION
     Route: 065

REACTIONS (42)
  - Septic shock [Recovered/Resolved with Sequelae]
  - Bone marrow disorder [Unknown]
  - Adjustment disorder [Unknown]
  - Inappropriate schedule of drug administration [Not Recovered/Not Resolved]
  - Hearing impaired [Unknown]
  - Respiratory failure [Unknown]
  - Depression [Unknown]
  - Iron overload [Unknown]
  - Haemorrhage intracranial [Recovering/Resolving]
  - Platelet count decreased [Recovering/Resolving]
  - Rash [Unknown]
  - Pulmonary oedema [Unknown]
  - Hypercreatinaemia [Unknown]
  - Neutropenic colitis [Unknown]
  - Headache [Unknown]
  - Bacterial sepsis [Unknown]
  - Aplastic anaemia [Not Recovered/Not Resolved]
  - Pleural effusion [Recovered/Resolved]
  - Platelet count decreased [Unknown]
  - Pneumonia klebsiella [Recovered/Resolved with Sequelae]
  - Ascites [Unknown]
  - Pyrexia [Unknown]
  - Drug ineffective [Not Recovered/Not Resolved]
  - Rash [Unknown]
  - Multi-organ failure [Recovering/Resolving]
  - Haemoglobin decreased [Recovering/Resolving]
  - White blood cell count decreased [Recovering/Resolving]
  - Ventricular dysfunction [Unknown]
  - Malnutrition [Unknown]
  - Visual impairment [Unknown]
  - Tremor [Unknown]
  - Pain [Unknown]
  - Death [Fatal]
  - Gastrointestinal haemorrhage [Unknown]
  - Pneumonia [Unknown]
  - Renal failure acute [Unknown]
  - Haemolysis [Unknown]
  - Pancytopenia [Recovering/Resolving]
  - Lymphoma [Unknown]
  - Respiratory failure [Unknown]
  - Generalised oedema [Unknown]
  - Asthenia [Unknown]

NARRATIVE: CASE EVENT DATE: 20140203
